FAERS Safety Report 6133685-2 (Version None)
Quarter: 2009Q1

REPORT INFORMATION
  Report Type: 
  Country: None (occurrence: None)
  Receive Date: 20090326
  Receipt Date: 20090316
  Transmission Date: 20090719
  Serious: Yes (Hospitalization)
  Sender: FDA-Public Use
  Company Number: B0563694A

PATIENT
  Age: 54 Year
  Sex: Female

DRUGS (5)
  1. LAPATINIB [Suspect]
     Indication: BREAST CANCER
     Dosage: 1500MG PER DAY
     Route: 048
     Dates: start: 20080221, end: 20090213
  2. IBUPROFEN TABLETS [Concomitant]
     Route: 048
     Dates: start: 20080429
  3. METAMIZOL [Concomitant]
     Route: 048
     Dates: start: 20080429
  4. SIMVASTATIN [Concomitant]
     Route: 048
     Dates: start: 20080207
  5. LEVOTHYROXINE SODIUM [Concomitant]
     Indication: HYPERTHYROIDISM
     Dosage: 50MG PER DAY
     Route: 048
     Dates: start: 19950101

REACTIONS (4)
  - BUNDLE BRANCH BLOCK LEFT [None]
  - CORONARY ARTERY DISEASE [None]
  - CORONARY ARTERY STENOSIS [None]
  - DYSPNOEA [None]
